FAERS Safety Report 8593344-3 (Version None)
Quarter: 2012Q3

REPORT INFORMATION
  Report Type: 
  Country: None (occurrence: None)
  Receive Date: 20120814
  Receipt Date: 20120806
  Transmission Date: 20120928
  Serious: Yes (Hospitalization)
  Sender: FDA-Public Use
  Company Number: JP-JNJFOC-20120804385

PATIENT
  Age: 78 Year
  Sex: Male
  Weight: 53 kg

DRUGS (7)
  1. REMICADE [Suspect]
     Dosage: TOTAL NUMBER OF INFUSIONS: 14
     Route: 042
     Dates: start: 20100830
  2. METHOTREXATE [Concomitant]
     Dosage: 4MG/W
     Route: 048
  3. REMICADE [Suspect]
     Route: 042
  4. REMICADE [Suspect]
     Indication: RHEUMATOID ARTHRITIS
     Route: 042
     Dates: start: 20120706
  5. PYRINAZIN [Concomitant]
     Indication: PREMEDICATION
     Route: 050
     Dates: start: 20120706, end: 20120706
  6. PREDNISOLONE [Concomitant]
     Route: 048
  7. ALL OTHER THERAPEUTICS [Concomitant]
     Indication: PREMEDICATION
     Dosage: DIPHENHYDRAMINE HYDROCHLORIDE, CALCIUM BROMIDE
     Route: 050
     Dates: start: 20120706, end: 20120706

REACTIONS (4)
  - PYREXIA [None]
  - CHILLS [None]
  - INFUSION RELATED REACTION [None]
  - OXYGEN SATURATION DECREASED [None]
